FAERS Safety Report 11941420 (Version 1)
Quarter: 2016Q1

REPORT INFORMATION
  Report Type: Report from Study
  Country: US (occurrence: US)
  Receive Date: 20160122
  Receipt Date: 20160122
  Transmission Date: 20160526
  Serious: Yes (Other)
  Sender: FDA-Public Use
  Company Number: US-ABBVIE-16K-163-1541033-00

PATIENT
  Sex: Female

DRUGS (1)
  1. HUMIRA [Suspect]
     Active Substance: ADALIMUMAB
     Indication: CROHN^S DISEASE
     Route: 058
     Dates: start: 201510

REACTIONS (11)
  - Chest pain [Recovered/Resolved]
  - Inappropriate schedule of drug administration [Unknown]
  - Seizure [Recovered/Resolved]
  - Speech disorder [Unknown]
  - Syncope [Unknown]
  - Influenza [Recovering/Resolving]
  - Headache [Unknown]
  - Fatigue [Unknown]
  - Lethargy [Unknown]
  - Memory impairment [Unknown]
  - Nasopharyngitis [Recovering/Resolving]

NARRATIVE: CASE EVENT DATE: 2015
